FAERS Safety Report 7593628-1 (Version None)
Quarter: 2011Q2

REPORT INFORMATION
  Report Type: 
  Country: None (occurrence: None)
  Receive Date: 20110628
  Receipt Date: 20110613
  Transmission Date: 20111010
  Serious: Yes (Life-Threatening)
  Sender: FDA-Public Use
  Company Number: TCI2011A03507

PATIENT
  Age: 68 Year
  Sex: Male

DRUGS (2)
  1. INSULIN HUMAN [Suspect]
     Dosage: INJECTION, ABOUT 4-5 YEARS EARLIER
  2. ACTOS [Suspect]
     Indication: TYPE 2 DIABETES MELLITUS
     Dosage: ,30 MG (30 MG, 1 D) PER ORAL
     Route: 048
     Dates: start: 20060101, end: 20110613

REACTIONS (1)
  - BLADDER CANCER [None]
